FAERS Safety Report 26202705 (Version 1)
Quarter: 2025Q4

REPORT INFORMATION
  Report Type: Spontaneous
  Country: US (occurrence: US)
  Receive Date: 20251226
  Receipt Date: 20251226
  Transmission Date: 20260118
  Serious: No
  Sender: ROCHE
  Company Number: US-ROCHE-10000467119

PATIENT
  Sex: Male

DRUGS (4)
  1. XOLAIR [Suspect]
     Active Substance: OMALIZUMAB
     Indication: Asthma
     Dosage: STRENGTH: 75 MG/0.5 ML
     Route: 058
     Dates: start: 202308
  2. XOLAIR [Suspect]
     Active Substance: OMALIZUMAB
     Dosage: STRENGTH: 150 MG/ML
     Route: 058
     Dates: start: 202308
  3. trikafta 100/50/75/150 MG [Concomitant]
     Indication: Product used for unknown indication
     Dosage: 100/50/75/150 MG, 2 ORANGE TABLET BY MOUTH IN MORNING AND 1 LIGHT BLUE TABLET IN THE EVENING
     Route: 048
  4. sublocade PF5 [Concomitant]
     Indication: Product used for unknown indication

REACTIONS (2)
  - Off label use [Unknown]
  - No adverse event [Unknown]
